FAERS Safety Report 23719128 (Version 1)
Quarter: 2024Q2

REPORT INFORMATION
  Report Type: Spontaneous
  Country: FR (occurrence: FR)
  Receive Date: 20240408
  Receipt Date: 20240408
  Transmission Date: 20240716
  Serious: Yes (Death)
  Sender: FDA-Public Use
  Company Number: FR-PURDUE-USA-2024-0308884

PATIENT
  Age: 93 Year
  Sex: Female
  Weight: 67.9 kg

DRUGS (1)
  1. OXYCODONE HYDROCHLORIDE [Suspect]
     Active Substance: OXYCODONE HYDROCHLORIDE
     Indication: Toxicity to various agents
     Dosage: 14 DOSAGE FORM
     Route: 048
     Dates: start: 20240313, end: 20240313

REACTIONS (6)
  - Brain hypoxia [Fatal]
  - Coma [Fatal]
  - Poisoning deliberate [Fatal]
  - Acute respiratory failure [Fatal]
  - Completed suicide [Fatal]
  - Toxicity to various agents [Fatal]

NARRATIVE: CASE EVENT DATE: 20240313
